FAERS Safety Report 9394122 (Version 2)
Quarter: 2013Q3

REPORT INFORMATION
  Report Type: Report from Study
  Country: DE (occurrence: DE)
  Receive Date: 20130710
  Receipt Date: 20130731
  Transmission Date: 20140515
  Serious: Yes (Hospitalization, Other)
  Sender: FDA-Public Use
  Company Number: DE-PW/030613/931

PATIENT
  Age: 0 Year
  Sex: Female

DRUGS (1)
  1. SUBUTEX [Suspect]
     Indication: DRUG DEPENDENCE
     Route: 064
     Dates: start: 20010717, end: 20011227

REACTIONS (6)
  - Drug withdrawal syndrome neonatal [Recovered/Resolved]
  - Nasal congestion [Recovered/Resolved]
  - Inguinal hernia [Recovered/Resolved]
  - Cyanosis [Recovered/Resolved]
  - Foetal exposure during pregnancy [Recovered/Resolved]
  - Premature baby [Recovered/Resolved]
